FAERS Safety Report 16730691 (Version 1)
Quarter: 2019Q3

REPORT INFORMATION
  Report Type: Spontaneous
  Country: US (occurrence: US)
  Receive Date: 20190705
  Receipt Date: 20190705
  Transmission Date: 20191005
  Serious: Yes (Hospitalization)
  Sender: FDA-Public Use
  Company Number: None

PATIENT
  Age: 72 Year
  Sex: Female
  Weight: 65.8 kg

DRUGS (13)
  1. LEXAPRO [Concomitant]
     Active Substance: ESCITALOPRAM OXALATE
  2. NO DRUG NAME [Concomitant]
  3. TRAZODONE (DESYREL) [Concomitant]
  4. TYLENOL [Concomitant]
     Active Substance: ACETAMINOPHEN
  5. NIVOLUMAB 240 MG [Suspect]
     Active Substance: NIVOLUMAB
     Indication: SARCOMA
     Route: 042
     Dates: start: 20181217
  6. ONDANSETRON (ZOFRAN-ODT) [Concomitant]
  7. VITAMINS (CENTRUM SILVER) TABS [Concomitant]
  8. OXYCODONE (OXY-IR) [Concomitant]
  9. PROCHLORPERAZINE (COMPAZINE) [Concomitant]
  10. IPILIMUMAB 1MG/KG [Suspect]
     Active Substance: IPILIMUMAB
     Indication: SARCOMA
     Route: 042
     Dates: start: 20181217
  11. XANAX [Concomitant]
     Active Substance: ALPRAZOLAM
  12. ESTROGENS CONJUGATED (PREMARIN) [Concomitant]
  13. XANAX [Concomitant]
     Active Substance: ALPRAZOLAM

REACTIONS (18)
  - Blood potassium decreased [None]
  - Diarrhoea [None]
  - Hypophagia [None]
  - Hypersomnia [None]
  - Asthenia [None]
  - Colitis [None]
  - Pyrexia [None]
  - Immune-mediated adverse reaction [None]
  - Drug ineffective [None]
  - Fatigue [None]
  - Therapy cessation [None]
  - Nausea [None]
  - Chills [None]
  - Dizziness [None]
  - Vomiting [None]
  - Paraesthesia [None]
  - Clostridium test positive [None]
  - Platelet count decreased [None]

NARRATIVE: CASE EVENT DATE: 20190120
